FAERS Safety Report 23663252 (Version 1)
Quarter: 2024Q1

REPORT INFORMATION
  Report Type: Spontaneous
  Country: GB (occurrence: GB)
  Receive Date: 20240322
  Receipt Date: 20240322
  Transmission Date: 20240410
  Serious: Yes (Hospitalization)
  Sender: FDA-Public Use
  Company Number: None

PATIENT
  Age: 61 Year
  Sex: Male

DRUGS (10)
  1. SPIRONOLACTONE [Suspect]
     Active Substance: SPIRONOLACTONE
     Dosage: 28 TABLET -OM ?TEMPORARILY WITHDRAWN THEN RESTARTED AT A LOWER DOSE
     Route: 065
     Dates: start: 20231106
  2. CYANOCOBALAMIN [Concomitant]
     Active Substance: CYANOCOBALAMIN
     Dosage: TIME INTERVAL: 0.33333333 DAYS: CYANOCOBALAMIN
     Route: 065
     Dates: start: 20231109
  3. SITAGLIPTIN [Concomitant]
     Active Substance: SITAGLIPTIN
     Dosage: 28 TABLET
     Route: 065
     Dates: start: 20231106
  4. ATORVASTATIN [Concomitant]
     Active Substance: ATORVASTATIN
     Dosage: 28 TABLET - ON
     Route: 065
     Dates: start: 20231009
  5. ESCITALOPRAM [Concomitant]
     Active Substance: ESCITALOPRAM OXALATE
     Dosage: 28 TABLET
     Route: 065
     Dates: start: 20231106
  6. FERROUS SULFATE [Concomitant]
     Active Substance: FERROUS SULFATE
     Dosage: 28 TABLET
     Route: 065
     Dates: start: 20231106
  7. EDOXABAN [Concomitant]
     Active Substance: EDOXABAN
     Dosage: 28 TABLET -5:30PM
     Route: 065
  8. BISOPROLOL [Concomitant]
     Active Substance: BISOPROLOL\BISOPROLOL FUMARATE
     Dosage: 28 TABLET
     Route: 065
     Dates: start: 20231106
  9. CETIRIZINE [Concomitant]
     Active Substance: CETIRIZINE HYDROCHLORIDE
     Dosage: TIME INTERVAL: AS NECESSARY: 30 TABLET
     Route: 065
     Dates: start: 20230811
  10. AMLODIPINE [Concomitant]
     Active Substance: AMLODIPINE BESYLATE
     Dosage: 28 TABLET
     Route: 065
     Dates: start: 20231106

REACTIONS (2)
  - Hyperkalaemia [Recovered/Resolved]
  - Acute kidney injury [Recovered/Resolved]
